FAERS Safety Report 14175451 (Version 1)
Quarter: 2017Q4

REPORT INFORMATION
  Report Type: Spontaneous
  Country: AT (occurrence: AT)
  Receive Date: 20171109
  Receipt Date: 20171109
  Transmission Date: 20180321
  Serious: Yes (Other)
  Sender: FDA-Public Use
  Company Number: AT-REGENERON PHARMACEUTICALS, INC.-2017-26473

PATIENT

DRUGS (1)
  1. EYLEA [Suspect]
     Active Substance: AFLIBERCEPT
     Indication: NEOVASCULAR AGE-RELATED MACULAR DEGENERATION
     Dosage: 6 INJECTIONS OF EYLEA
     Dates: start: 2014, end: 2015

REACTIONS (4)
  - Retinal degeneration [Unknown]
  - Eye haemorrhage [Unknown]
  - Visual impairment [Unknown]
  - Detachment of retinal pigment epithelium [Unknown]
